FAERS Safety Report 18659940 (Version 1)
Quarter: 2020Q4

REPORT INFORMATION
  Report Type: Spontaneous
  Country: US (occurrence: US)
  Receive Date: 20201223
  Receipt Date: 20201223
  Transmission Date: 20210114
  Serious: No
  Sender: FDA-Public Use
  Company Number: US-NEXGEN PHARMA, INC.-2103438

PATIENT
  Age: 15 Year
  Sex: Male

DRUGS (2)
  1. STOOL SOFTENERS (UNSPECIFIED) [Concomitant]
  2. CHENODAL [Suspect]
     Active Substance: CHENODIOL
     Indication: LIPIDOSIS
     Route: 048
     Dates: start: 20201115

REACTIONS (1)
  - Constipation [Recovering/Resolving]
